FAERS Safety Report 6259568-5 (Version None)
Quarter: 2009Q3

REPORT INFORMATION
  Report Type: 
  Country: None (occurrence: None)
  Receive Date: 20090708
  Receipt Date: 20090706
  Transmission Date: 20100115
  Serious: Yes (Life-Threatening, Other)
  Sender: FDA-Public Use
  Company Number: ES-PFIZER INC-2009224469

PATIENT
  Age: 43 Year

DRUGS (5)
  1. CELSENTRI [Suspect]
     Dosage: 150 MG, UNK
     Route: 048
     Dates: start: 20080312
  2. ISENTRESS [Suspect]
     Indication: HIV INFECTION
     Dosage: 400 MG, UNK
     Route: 048
     Dates: start: 20080312
  3. NORVIR [Suspect]
     Indication: HIV INFECTION
     Dosage: 100 MG, UNK
     Route: 048
     Dates: start: 20040824
  4. PREZISTA [Suspect]
     Indication: HIV INFECTION
     Dosage: 300 MG, UNK
     Route: 048
     Dates: start: 20080312
  5. TRUVADA [Suspect]
     Indication: HIV INFECTION
     Dosage: 200 MG/245 MG, UNK
     Route: 048
     Dates: start: 20080402

REACTIONS (1)
  - LUNG SQUAMOUS CELL CARCINOMA STAGE UNSPECIFIED [None]
